FAERS Safety Report 10028661 (Version 6)
Quarter: 2014Q4

REPORT INFORMATION
  Report Type: Spontaneous
  Country: IL (occurrence: IL)
  Receive Date: 20140321
  Receipt Date: 20141126
  Transmission Date: 20150528
  Serious: Yes (Other)
  Sender: FDA-Public Use
  Company Number: IL-VERTEX PHARMACEUTICALS INC-2014-001334

PATIENT
  Age: 62 Year
  Sex: Female

DRUGS (2)
  1. INCIVO [Suspect]
     Active Substance: TELAPREVIR
     Dosage: UNK
     Route: 048
  2. INCIVO [Suspect]
     Active Substance: TELAPREVIR
     Indication: HEPATITIS C
     Dosage: UNK
     Route: 048
     Dates: start: 20131227, end: 20140320

REACTIONS (13)
  - Dry mouth [Unknown]
  - Mucosal dryness [Unknown]
  - Haemoglobin decreased [Unknown]
  - Thyroid function test abnormal [Unknown]
  - Alopecia [Recovering/Resolving]
  - Dry skin [Unknown]
  - Blood cholesterol increased [Unknown]
  - Pruritus [Unknown]
  - Heart rate increased [Not Recovered/Not Resolved]
  - Angina pectoris [Not Recovered/Not Resolved]
  - Weight decreased [Not Recovered/Not Resolved]
  - Chills [Unknown]
  - Rash [Unknown]
